FAERS Safety Report 9946420 (Version 1)
Quarter: 2014Q1

REPORT INFORMATION
  Report Type: Report from Study
  Country: US (occurrence: US)
  Receive Date: 20140303
  Receipt Date: 20140303
  Transmission Date: 20141002
  Serious: No
  Sender: FDA-Public Use
  Company Number: US-ABBVIE-13P-163-1062953-00

PATIENT
  Sex: Female
  Weight: 74.91 kg

DRUGS (8)
  1. HUMIRA [Suspect]
     Indication: ANKYLOSING SPONDYLITIS
  2. HUMIRA [Suspect]
     Indication: RHEUMATOID ARTHRITIS
  3. TADALAFIL [Concomitant]
     Indication: PULMONARY ARTERIAL HYPERTENSION
  4. TRACLEER [Concomitant]
     Indication: PULMONARY ARTERIAL HYPERTENSION
  5. FUROSEMIDE [Concomitant]
     Indication: PRODUCT USED FOR UNKNOWN INDICATION
  6. POTASSIUM [Concomitant]
     Indication: PRODUCT USED FOR UNKNOWN INDICATION
  7. OMEGA 3 [Concomitant]
     Indication: PRODUCT USED FOR UNKNOWN INDICATION
  8. SYNTHROID [Concomitant]
     Indication: PRODUCT USED FOR UNKNOWN INDICATION

REACTIONS (1)
  - Psoriatic arthropathy [Not Recovered/Not Resolved]
